FAERS Safety Report 8889207 (Version 4)
Quarter: 2013Q1

REPORT INFORMATION
  Report Type: Report from Study
  Country: US (occurrence: US)
  Receive Date: 20121106
  Receipt Date: 20130314
  Transmission Date: 20140127
  Serious: Yes (Hospitalization)
  Sender: FDA-Public Use
  Company Number: US-JNJFOC-20121102376

PATIENT
  Age: 12 Year
  Sex: Female
  Weight: 104.9 kg

DRUGS (10)
  1. REMICADE [Suspect]
     Indication: INFLAMMATORY BOWEL DISEASE
     Route: 042
     Dates: start: 20111002
  2. METHOTREXATE [Suspect]
     Indication: PRODUCT USED FOR UNKNOWN INDICATION
  3. ANTIBIOTICS [Suspect]
     Indication: PRODUCT USED FOR UNKNOWN INDICATION
  4. GUANFACINE [Concomitant]
  5. TRAMADOL [Concomitant]
  6. 5-ASA [Concomitant]
  7. CALCIUM CARBONATE [Concomitant]
  8. CHOLECALCIFEROL [Concomitant]
  9. FOLIC ACID [Concomitant]
  10. MULTIVIT [Concomitant]

REACTIONS (1)
  - Clostridium difficile infection [Recovered/Resolved]
